FAERS Safety Report 11321095 (Version 1)
Quarter: 2015Q3

REPORT INFORMATION
  Report Type: Spontaneous
  Country: US (occurrence: None)
  Receive Date: 20150728
  Receipt Date: 20150728
  Transmission Date: 20151125
  Serious: No
  Sender: FDA-Public Use
  Company Number: None

PATIENT
  Age: 81 Year
  Sex: Female

DRUGS (16)
  1. AMPYRA [Suspect]
     Active Substance: DALFAMPRIDINE
     Indication: MULTIPLE SCLEROSIS
     Route: 048
     Dates: start: 201007
  2. QUETIAPINE [Concomitant]
     Active Substance: QUETIAPINE
  3. ALBUTEROL HFA [Concomitant]
     Active Substance: ALBUTEROL SULFATE
  4. ARIPIPRAZOLE. [Concomitant]
     Active Substance: ARIPIPRAZOLE
  5. ZOLPIDEM [Concomitant]
     Active Substance: ZOLPIDEM\ZOLPIDEM TARTRATE
  6. SIMVASTATIN. [Concomitant]
     Active Substance: SIMVASTATIN
  7. PROPRANOLOL [Concomitant]
     Active Substance: PROPRANOLOL\PROPRANOLOL HYDROCHLORIDE
  8. NORTRIPTYLINE [Concomitant]
     Active Substance: NORTRIPTYLINE
  9. ALENDRONATE [Concomitant]
     Active Substance: ALENDRONATE SODIUM
  10. OXAZEPAM. [Concomitant]
     Active Substance: OXAZEPAM
  11. OXYBUTYNIN [Concomitant]
     Active Substance: OXYBUTYNIN
  12. GABAPENTIN. [Concomitant]
     Active Substance: GABAPENTIN
  13. DIVALPROEX [Concomitant]
     Active Substance: DIVALPROEX SODIUM
  14. BACLOFEN. [Concomitant]
     Active Substance: BACLOFEN
  15. VENALAFAXINE [Concomitant]
  16. BECLOMETHASONE HFA [Concomitant]

REACTIONS (1)
  - Laboratory test abnormal [None]

NARRATIVE: CASE EVENT DATE: 20150715
